FAERS Safety Report 10522628 (Version 4)
Quarter: 2014Q4

REPORT INFORMATION
  Report Type: Report from Study
  Country: GB (occurrence: GB)
  Receive Date: 20141016
  Receipt Date: 20141208
  Transmission Date: 20150528
  Serious: Yes (Other)
  Sender: FDA-Public Use
  Company Number: GB-ABBVIE-14K-167-1283928-00

PATIENT
  Age: 53 Year
  Sex: Female

DRUGS (3)
  1. UNKNOWN STEROIDS [Concomitant]
     Active Substance: UNSPECIFIED INGREDIENT
     Indication: RHEUMATOID ARTHRITIS
  2. METHOTREXATE [Suspect]
     Active Substance: METHOTREXATE
     Indication: RHEUMATOID ARTHRITIS
     Route: 048
  3. HUMIRA [Suspect]
     Active Substance: ADALIMUMAB
     Indication: RHEUMATOID ARTHRITIS
     Route: 050
     Dates: start: 20140908

REACTIONS (29)
  - Pain [Unknown]
  - Feeling abnormal [Unknown]
  - Swelling [Unknown]
  - Rheumatoid arthritis [Unknown]
  - Injury associated with device [Recovered/Resolved]
  - Depressed mood [Unknown]
  - Thinking abnormal [Unknown]
  - Injection site haemorrhage [Recovered/Resolved]
  - Injection site bruising [Recovered/Resolved]
  - Injection site swelling [Recovered/Resolved]
  - Frustration [Unknown]
  - Peripheral swelling [Unknown]
  - Headache [Unknown]
  - Menopausal symptoms [Unknown]
  - Drug ineffective [Unknown]
  - Malaise [Unknown]
  - Nausea [Unknown]
  - Abdominal discomfort [Unknown]
  - Hot flush [Unknown]
  - Wrong technique in drug usage process [Recovered/Resolved]
  - Depression [Unknown]
  - Arthralgia [Unknown]
  - Fear of injection [Unknown]
  - Mobility decreased [Unknown]
  - Memory impairment [Unknown]
  - Blood test abnormal [Unknown]
  - Hyperhidrosis [Unknown]
  - Panic attack [Unknown]
  - Incorrect route of drug administration [Unknown]

NARRATIVE: CASE EVENT DATE: 2014
